FAERS Safety Report 25051112 (Version 1)
Quarter: 2025Q1

REPORT INFORMATION
  Report Type: Spontaneous
  Country: US (occurrence: US)
  Receive Date: 20250307
  Receipt Date: 20250307
  Transmission Date: 20250408
  Serious: No
  Sender: SAMSUNG BIOEPIS
  Company Number: US-SAMSUNG BIOEPIS-SB-2024-25972

PATIENT
  Age: 23 Year
  Sex: Male

DRUGS (2)
  1. HADLIMA [Suspect]
     Active Substance: ADALIMUMAB-BWWD
     Indication: Rheumatoid arthritis
     Dosage: 40MG/0.4ML;
     Route: 058
  2. HADLIMA [Suspect]
     Active Substance: ADALIMUMAB-BWWD
     Indication: Crohn^s disease

REACTIONS (5)
  - Injection site pain [Unknown]
  - Emotional distress [Unknown]
  - Device difficult to use [Unknown]
  - Product label confusion [Unknown]
  - Device use issue [Unknown]

NARRATIVE: CASE EVENT DATE: 20240801
